FAERS Safety Report 5034855-7 (Version None)
Quarter: 2006Q2

REPORT INFORMATION
  Report Type: 
  Country: None (occurrence: None)
  Receive Date: 20060621
  Receipt Date: 20060609
  Transmission Date: 20061013
  Serious: Yes (Other)
  Sender: FDA-Public Use
  Company Number: CHNY2006AU01790

PATIENT
  Age: 64 Year
  Sex: Female

DRUGS (3)
  1. NICOTINE [Suspect]
     Indication: SMOKING CESSATION THERAPY
     Dosage: 14 MG QD TRANSDERMAL
     Route: 062
     Dates: start: 20060606, end: 20060607
  2. CARTIA /AUS/(ACETYLSALICYLIC ACID) [Concomitant]
  3. NICABATE (NICOTINE) [Concomitant]

REACTIONS (13)
  - ANXIETY [None]
  - CHEST PAIN [None]
  - DIZZINESS [None]
  - FEELING ABNORMAL [None]
  - FLUSHING [None]
  - HEADACHE [None]
  - HEMIPARESIS [None]
  - HYPERTENSION [None]
  - MALAISE [None]
  - MOVEMENT DISORDER [None]
  - MUSCLE SPASTICITY [None]
  - PAIN IN JAW [None]
  - TRANSIENT ISCHAEMIC ATTACK [None]
